FAERS Safety Report 5563162-9 (Version None)
Quarter: 2007Q4

REPORT INFORMATION
  Report Type: 
  Country: None (occurrence: None)
  Receive Date: 20071217
  Receipt Date: 20071212
  Transmission Date: 20080405
  Serious: Yes (Hospitalization)
  Sender: FDA-Public Use
  Company Number: B0499884A

PATIENT
  Age: 46 Year
  Sex: Female

DRUGS (2)
  1. SERETIDE [Suspect]
     Dosage: 600MCG PER DAY
     Route: 055
     Dates: start: 20071126, end: 20071129
  2. BAMIFIX [Suspect]
     Dosage: 1200MG PER DAY
     Route: 048
     Dates: start: 20071126, end: 20071129

REACTIONS (1)
  - ERYTHEMA MULTIFORME [None]
